FAERS Safety Report 9271196 (Version 2)
Quarter: 2013Q3

REPORT INFORMATION
  Report Type: Spontaneous
  Country: GB (occurrence: GB)
  Receive Date: 20130506
  Receipt Date: 20130723
  Transmission Date: 20140515
  Serious: Yes (Death, Hospitalization, Other)
  Sender: FDA-Public Use
  Company Number: PHFR2013GB002605

PATIENT
  Age: 55 Year
  Sex: Female

DRUGS (12)
  1. CLOZARIL [Suspect]
     Indication: SCHIZOPHRENIA
     Dosage: UNK
     Route: 048
     Dates: start: 20041029
  2. CLOZARIL [Suspect]
     Dosage: 375 MG, PER DAY
     Route: 048
  3. AMISULPRIDE [Concomitant]
     Dosage: 400 MG, BID
  4. LANSOPRAZOLE [Concomitant]
     Dosage: 30 MG, QD
  5. METFORMIN [Concomitant]
     Dosage: 1 G, QD
  6. HUMALOG MIX [Concomitant]
     Dosage: UNK, (28 UNITS IN MORNING AND 20 UNITS BEFORE TEA)
  7. LOFEPRAMINE [Concomitant]
     Dosage: 70 MG, QD
  8. CLOZAPINE [Concomitant]
     Dosage: 375 MG,(125 MG IN MORNING AND 250 MG BEFORE BED TIME)
  9. FERROUS FUMARATE [Concomitant]
     Dosage: 210 MG, TWICE DAILY
  10. DILTIAZEM [Concomitant]
     Dosage: 180 MG, QD
  11. DOCUSATE [Concomitant]
     Dosage: 100 MG, BID
  12. SENNA [Concomitant]
     Dosage: 2 DF,(2 TABLETS, DAILY)

REACTIONS (5)
  - Death [Fatal]
  - General physical health deterioration [Unknown]
  - Diabetes mellitus [Unknown]
  - Blood pressure increased [Unknown]
  - Anaemia [Unknown]
